FAERS Safety Report 21219653 (Version 4)
Quarter: 2023Q1

REPORT INFORMATION
  Report Type: Spontaneous
  Country: US (occurrence: US)
  Receive Date: 20220817
  Receipt Date: 20230315
  Transmission Date: 20230418
  Serious: Yes (Life-Threatening, Hospitalization, Other)
  Sender: FDA-Public Use
  Company Number: US-MLMSERVICE-20220801-3709381-1

PATIENT
  Age: 17 Year
  Sex: Female
  Weight: 103 kg

DRUGS (13)
  1. ACETAMINOPHEN [Suspect]
     Active Substance: ACETAMINOPHEN
     Indication: Product used for unknown indication
     Dosage: UNK
     Route: 048
     Dates: start: 202107
  2. AMLODIPINE [Suspect]
     Active Substance: AMLODIPINE BESYLATE
     Indication: Product used for unknown indication
     Dosage: UNK (500 TO 550 MG)
     Route: 048
     Dates: start: 202107
  3. AMOXICILLIN [Suspect]
     Active Substance: AMOXICILLIN
     Indication: Product used for unknown indication
     Dosage: UNK
     Route: 048
     Dates: start: 202107
  4. IBUPROFEN [Suspect]
     Active Substance: IBUPROFEN
     Indication: Product used for unknown indication
     Dosage: UNK
     Route: 048
     Dates: start: 202107
  5. CALCIUM [Concomitant]
     Active Substance: CALCIUM
     Indication: Hypotension
     Dosage: UNK
     Route: 065
  6. INSULIN NOS [Concomitant]
     Active Substance: INSULIN NOS
     Indication: Hypotension
     Dosage: 0.1 U/KG/HOUR
     Route: 065
  7. INSULIN NOS [Concomitant]
     Active Substance: INSULIN NOS
     Dosage: 7 U/KG/HOUR
     Route: 065
  8. NOREPINEPHRINE [Concomitant]
     Active Substance: NOREPINEPHRINE
     Indication: Hypotension
     Dosage: UNK
     Route: 065
  9. GLUCAGON [Concomitant]
     Active Substance: GLUCAGON
     Indication: Hypotension
     Dosage: UNK
  10. SODIUM BICARBONATE [Concomitant]
     Active Substance: SODIUM BICARBONATE
     Indication: Hypotension
     Dosage: UNK
     Route: 065
  11. VASOPRESSIN [Concomitant]
     Active Substance: VASOPRESSIN
     Indication: Hypotension
     Dosage: UNK
     Route: 065
  12. METHYLENE BLUE [Concomitant]
     Active Substance: METHYLENE BLUE
     Indication: Hypotension
     Dosage: UNK
     Route: 065
  13. EPINEPHRINE [Concomitant]
     Active Substance: EPINEPHRINE
     Indication: Hypotension
     Dosage: UNK
     Route: 065

REACTIONS (11)
  - Infarction [Unknown]
  - Cerebrovascular accident [Unknown]
  - Intentional overdose [Recovering/Resolving]
  - Circulatory collapse [Recovering/Resolving]
  - Toxicity to various agents [Recovering/Resolving]
  - Unresponsive to stimuli [Recovering/Resolving]
  - Vasoplegia syndrome [Recovering/Resolving]
  - Acute kidney injury [Recovering/Resolving]
  - Visual impairment [Unknown]
  - Seizure [Recovering/Resolving]
  - Hypotension [Recovering/Resolving]

NARRATIVE: CASE EVENT DATE: 20210701
